FAERS Safety Report 4693117-8 (Version None)
Quarter: 2005Q2

REPORT INFORMATION
  Report Type: 
  Country: None (occurrence: None)
  Receive Date: 20050617
  Receipt Date: 20050607
  Transmission Date: 20051028
  Serious: Yes (Hospitalization)
  Sender: FDA-Public Use
  Company Number: PT-ABBOTT-05P-130-0302628-00

PATIENT
  Sex: Male

DRUGS (1)
  1. BRUFEN [Suspect]
     Indication: RESPIRATORY TRACT INFECTION
     Route: 048
     Dates: start: 20010101, end: 20010101

REACTIONS (9)
  - DYSPNOEA [None]
  - EYELID OEDEMA [None]
  - FACE OEDEMA [None]
  - ORAL DISCOMFORT [None]
  - PHARYNX DISCOMFORT [None]
  - PRURITUS [None]
  - STRIDOR [None]
  - TONGUE OEDEMA [None]
  - URTICARIA [None]
